FAERS Safety Report 9056404 (Version 3)
Quarter: 2013Q4

REPORT INFORMATION
  Report Type: Spontaneous
  Country: US (occurrence: US)
  Receive Date: 20130204
  Receipt Date: 20131218
  Transmission Date: 20140711
  Serious: Yes (Hospitalization, Other)
  Sender: FDA-Public Use
  Company Number: US-009507513-2012SP029901

PATIENT
  Sex: Female
  Weight: 52.15 kg

DRUGS (4)
  1. NUVARING [Suspect]
     Indication: CONTRACEPTION
     Dosage: UNK
     Route: 067
     Dates: start: 200905, end: 201006
  2. NUVARING [Suspect]
     Dosage: UNK
     Route: 067
     Dates: start: 20071019
  3. CELEXA [Concomitant]
     Indication: DEPRESSION
     Dosage: 40 MG, QD
     Route: 048
     Dates: start: 2001
  4. IBUPROFEN [Concomitant]
     Indication: HEADACHE
     Dosage: 200-800 MG
     Route: 048

REACTIONS (4)
  - Abortion induced [Recovered/Resolved]
  - Pulmonary embolism [Unknown]
  - Hysterectomy [Recovered/Resolved]
  - Oropharyngeal pain [Unknown]
